FAERS Safety Report 6889848-1 (Version None)
Quarter: 2010Q3

REPORT INFORMATION
  Report Type: 
  Country: None (occurrence: None)
  Receive Date: 20100730
  Receipt Date: 20080521
  Transmission Date: 20110219
  Serious: No
  Sender: FDA-Public Use
  Company Number: US-PFIZER INC-2008044447

PATIENT
  Sex: Female

DRUGS (13)
  1. LIPITOR [Suspect]
     Indication: BLOOD CHOLESTEROL INCREASED
  2. NIASPAN [Concomitant]
     Indication: BLOOD CHOLESTEROL INCREASED
     Route: 048
     Dates: start: 20070101
  3. METOPROLOL SUCCINATE [Concomitant]
     Indication: HYPERTENSION
     Route: 048
  4. VALSARTAN [Concomitant]
     Indication: HYPERTENSION
     Dosage: TDD: 160/25
     Route: 048
  5. CALCIUM WITH VITAMIN D [Concomitant]
     Route: 048
  6. ASCORBIC ACID [Concomitant]
     Route: 048
  7. CHONDROITIN/GLUCOSAMINE/METHYLSULFONYLMETHANE [Concomitant]
     Indication: ARTHRITIS
     Dosage: TDD: 2 TABLETS
     Route: 048
  8. TAURINE [Concomitant]
     Route: 048
  9. LEVOCARNITINE [Concomitant]
     Route: 048
  10. THERAGRAN-M [Concomitant]
     Dosage: TDD 1 TABLET
     Route: 048
  11. CO-ENZYME Q-10/LECITHIN/LEMON BIOFLAVONOIDS/QUERCETIN [Concomitant]
     Route: 048
  12. ACETYLSALICYLIC ACID SRT [Concomitant]
  13. FISH OIL [Concomitant]

REACTIONS (1)
  - ARTHRALGIA [None]
